FAERS Safety Report 19952877 (Version 1)
Quarter: 2021Q4

REPORT INFORMATION
  Report Type: Spontaneous
  Country: US (occurrence: US)
  Receive Date: 20211013
  Receipt Date: 20211013
  Transmission Date: 20220304
  Serious: Yes (Death, Life-Threatening)
  Sender: FDA-Public Use
  Company Number: None

PATIENT
  Age: 57 Year
  Sex: Male
  Weight: 131.4 kg

DRUGS (22)
  1. BARICITINIB [Suspect]
     Active Substance: BARICITINIB
     Indication: COVID-19
     Route: 048
     Dates: start: 20210910, end: 20210918
  2. INSULIN NOS [Concomitant]
     Active Substance: INSULIN NOS
     Dates: start: 20210908, end: 20211007
  3. PIPERACILLIN AND TAZOBACTAM [Concomitant]
     Active Substance: PIPERACILLIN SODIUM\TAZOBACTAM SODIUM
     Dates: start: 20211005, end: 20211008
  4. SOLU-MEDROL [Concomitant]
     Active Substance: METHYLPREDNISOLONE SODIUM SUCCINATE
     Dates: start: 20210908, end: 20210920
  5. LOVENOX [Concomitant]
     Active Substance: ENOXAPARIN SODIUM
     Dates: start: 20210908, end: 20210926
  6. REMDESIVIR [Concomitant]
     Active Substance: REMDESIVIR
     Dates: start: 20210908, end: 20210917
  7. FENTANYL [Concomitant]
     Active Substance: FENTANYL
     Dates: start: 20210908, end: 20210915
  8. PROPOFOL [Concomitant]
     Active Substance: PROPOFOL
     Dates: start: 20210908, end: 20210917
  9. VANCOMYCIN [Concomitant]
     Active Substance: VANCOMYCIN
     Dates: start: 20210908, end: 20210911
  10. CEFEPIME [Concomitant]
     Active Substance: CEFEPIME HYDROCHLORIDE
     Dates: start: 20210908, end: 20210914
  11. MIDAZOLAM [Concomitant]
     Active Substance: MIDAZOLAM
     Dates: start: 20210908, end: 20210915
  12. CEFEPIME [Concomitant]
     Active Substance: CEFEPIME HYDROCHLORIDE
     Dates: start: 20210907, end: 20210914
  13. VANCOMYCIN [Concomitant]
     Active Substance: VANCOMYCIN
     Dates: start: 20210917, end: 20210918
  14. FAMOTIDINE [Concomitant]
     Active Substance: FAMOTIDINE
     Dates: start: 20210908, end: 20211007
  15. MEROPENEM [Concomitant]
     Active Substance: MEROPENEM
     Dates: start: 20210918, end: 20210920
  16. FUROSEMIDE [Concomitant]
     Active Substance: FUROSEMIDE
     Dates: start: 20210915, end: 20210920
  17. TOBRAMYCIN [Concomitant]
     Active Substance: TOBRAMYCIN
     Dates: start: 20210918, end: 20210920
  18. MEROPENEM [Concomitant]
     Active Substance: MEROPENEM
     Dates: start: 20210919, end: 20210920
  19. dexamedetomidine [Concomitant]
     Dates: start: 20210916, end: 20210923
  20. VANCOMYCIN [Concomitant]
     Active Substance: VANCOMYCIN
     Dates: start: 20211005, end: 20211008
  21. LEVOFLOXACIN [Concomitant]
     Active Substance: LEVOFLOXACIN
     Dates: start: 20210919, end: 20211002
  22. AMPICILLIN [Concomitant]
     Active Substance: AMPICILLIN
     Dates: start: 20210920, end: 20210930

REACTIONS (16)
  - Refusal of treatment by patient [None]
  - Sepsis [None]
  - Pyrexia [None]
  - Tachycardia [None]
  - Blood pressure decreased [None]
  - Stenotrophomonas test positive [None]
  - Sputum culture positive [None]
  - Escherichia test positive [None]
  - Culture urine positive [None]
  - Candida test positive [None]
  - Acinetobacter test positive [None]
  - Blood culture positive [None]
  - Enterococcus test positive [None]
  - Staphylococcus test positive [None]
  - Staphylococcus test positive [None]
  - Bacteraemia [None]

NARRATIVE: CASE EVENT DATE: 20210917
